FAERS Safety Report 12442583 (Version 1)
Quarter: 2016Q2

REPORT INFORMATION
  Report Type: Spontaneous
  Country: US (occurrence: US)
  Receive Date: 20160607
  Receipt Date: 20160607
  Transmission Date: 20160815
  Serious: Yes (Hospitalization)
  Sender: FDA-Public Use
  Company Number: US-DSJP-DSU-2015-134295

PATIENT
  Age: 61 Year
  Sex: Male
  Weight: 71.66 kg

DRUGS (2)
  1. BENICAR HCT [Suspect]
     Active Substance: HYDROCHLOROTHIAZIDE\OLMESARTAN MEDOXOMIL
     Indication: HYPERTENSION
     Dosage: 20/12.5 MG
     Dates: start: 201107, end: 201407
  2. BENICAR [Suspect]
     Active Substance: OLMESARTAN MEDOXOMIL
     Indication: HYPERTENSION
     Dosage: 20 MG, UNK
     Dates: start: 201107, end: 201509

REACTIONS (15)
  - Colitis ulcerative [Unknown]
  - Crohn^s disease [Unknown]
  - Anxiety [Unknown]
  - Ulcer [Unknown]
  - Large intestine polyp [Unknown]
  - Renal cyst [Unknown]
  - Duodenal ulcer [Unknown]
  - Haemorrhoids [Recovered/Resolved]
  - Renal disorder [Unknown]
  - Diverticulum [Unknown]
  - Large intestinal stenosis [Unknown]
  - Malabsorption [Recovered/Resolved]
  - Granuloma [Unknown]
  - Gastrooesophageal reflux disease [Unknown]
  - Rectal haemorrhage [Recovered/Resolved]

NARRATIVE: CASE EVENT DATE: 201205
